FAERS Safety Report 6466229-6 (Version None)
Quarter: 2009Q4

REPORT INFORMATION
  Report Type: 
  Country: None (occurrence: None)
  Receive Date: 20091202
  Receipt Date: 20091120
  Transmission Date: 20100525
  Serious: Yes (Other)
  Sender: FDA-Public Use
  Company Number: PHHY2009AU49035

PATIENT
  Sex: Male

DRUGS (1)
  1. CLOZARIL [Suspect]
     Dosage: 550 MG
     Route: 048
     Dates: start: 19950822

REACTIONS (2)
  - ABDOMINAL PAIN [None]
  - PANCREATIC CARCINOMA [None]
